FAERS Safety Report 5679349-0 (Version None)
Quarter: 2008Q1

REPORT INFORMATION
  Report Type: 
  Country: None (occurrence: None)
  Receive Date: 20080321
  Receipt Date: 20080314
  Transmission Date: 20080703
  Serious: Yes (Death)
  Sender: FDA-Public Use
  Company Number: E2090-00402-CLI-CN

PATIENT
  Age: 22 Year
  Sex: Male
  Weight: 79 kg

DRUGS (5)
  1. ZONISAMIDE [Suspect]
     Indication: EPILEPSY
     Dosage: 400 MG, 2 IN 1 D, ORAL
     Route: 048
     Dates: start: 20070322, end: 20080101
  2. ZONISAMIDE [Suspect]
     Indication: EPILEPSY
     Dosage: DOUBLE-BLIND, 2 IN 1 D, ORAL
     Route: 048
     Dates: start: 20061103, end: 20070201
  3. ZONISAMIDE [Suspect]
     Indication: EPILEPSY
     Dosage: DOUBLE-BLIND, 2 IN 1 D, ORAL
     Route: 048
     Dates: start: 20070225, end: 20080301
  4. VALPROATE SODIUM [Concomitant]
  5. GABAPENTIN [Concomitant]

REACTIONS (2)
  - DISCOMFORT [None]
  - TRANSFUSION REACTION [None]
